FAERS Safety Report 25267981 (Version 2)
Quarter: 2025Q2

REPORT INFORMATION
  Report Type: Report from Study
  Country: AR (occurrence: AR)
  Receive Date: 20250505
  Receipt Date: 20250602
  Transmission Date: 20250717
  Serious: Yes (Hospitalization, Other)
  Sender: CSL BEHRING
  Company Number: AR-BEH-2025201833

PATIENT
  Age: 25 Year
  Sex: Female

DRUGS (18)
  1. HIZENTRA [Suspect]
     Active Substance: HUMAN IMMUNOGLOBULIN G
     Indication: Primary immunodeficiency syndrome
     Route: 058
     Dates: start: 20130510, end: 202411
  2. LEVOTHYROXINE [Concomitant]
     Active Substance: LEVOTHYROXINE
     Dosage: 50 ?G, QD
  3. HYDROCORTISONE [Concomitant]
     Active Substance: HYDROCORTISONE
  4. Calcio Base Dupomar [Concomitant]
     Dosage: TAKE 2 TABLETS PER DAY
  5. SERTRALINE [Concomitant]
     Active Substance: SERTRALINE HYDROCHLORIDE
     Dosage: 50 MG, QD (HALF A TABLET PER DAY)
  6. CALCITRIOL [Concomitant]
     Active Substance: CALCITRIOL
     Dosage: 0.25 MG, 1 TABLET PER DAY
  7. ERYTHROPOIETIN [Concomitant]
     Active Substance: ERYTHROPOIETIN
     Dosage: 4000 IU, BIW
  8. Control k [Concomitant]
     Dosage: 3 TABLETS PER DAY
  9. Clonagin [Concomitant]
     Dosage: 0.5 MG, 1 TABLET PER DAY
  10. LEVETIRACETAM [Concomitant]
     Active Substance: LEVETIRACETAM
     Dosage: 1 TABLET PER DAY
  11. ROSUVASTATIN [Concomitant]
     Active Substance: ROSUVASTATIN
     Dosage: 5 MG, 1 TABLET PER DAY
  12. ROSUVASTATIN [Concomitant]
     Active Substance: ROSUVASTATIN
     Dosage: 10 MG, QD (AT NIGHT)
  13. Holomagnesio [Concomitant]
     Dosage: UNK, QD
  14. Holomagnesio [Concomitant]
     Dosage: UNK, BID
  15. AMILORIDE [Concomitant]
     Active Substance: AMILORIDE
     Dosage: 5 MG, QD
  16. CLONAZEPAM [Concomitant]
     Active Substance: CLONAZEPAM
     Dosage: 0.5 MG, QD (AT NIGHT)
  17. FEBUXOSTAT [Concomitant]
     Active Substance: FEBUXOSTAT
     Dosage: 80 MG, QD
  18. CALCIUM CARBONATE [Concomitant]
     Active Substance: CALCIUM CARBONATE
     Dosage: 3 DF, QD

REACTIONS (14)
  - Electrolyte imbalance [Unknown]
  - Ill-defined disorder [Recovered/Resolved]
  - Chronic kidney disease [Unknown]
  - Dysphonia [Recovered/Resolved]
  - Dyspnoea [Recovered/Resolved]
  - Adrenal insufficiency [Unknown]
  - Renal impairment [Unknown]
  - Skin infection [Unknown]
  - Soft tissue infection [Unknown]
  - Hyponatraemia [Unknown]
  - Hypercalcaemia [Unknown]
  - Hypomagnesaemia [Unknown]
  - Therapy cessation [Unknown]
  - Thermal burn [Unknown]

NARRATIVE: CASE EVENT DATE: 20190101
